FAERS Safety Report 10133544 (Version 2)
Quarter: 2014Q2

REPORT INFORMATION
  Report Type: Spontaneous
  Country: US (occurrence: US)
  Receive Date: 20140428
  Receipt Date: 20140506
  Transmission Date: 20141212
  Serious: Yes (Hospitalization)
  Sender: FDA-Public Use
  Company Number: US-GLAXOSMITHKLINE-A1051140A

PATIENT
  Age: 88 Year
  Sex: Female
  Weight: 82.3 kg

DRUGS (2)
  1. ADVAIR [Suspect]
     Indication: ASTHMA
     Dosage: 1PUFF TWICE PER DAY
     Route: 055
     Dates: start: 20130921
  2. UNSPECIFIED MEDICATION [Concomitant]

REACTIONS (4)
  - Pneumonia [Unknown]
  - Investigation [Unknown]
  - Skin exfoliation [Unknown]
  - Memory impairment [Unknown]
